FAERS Safety Report 14511412 (Version 2)
Quarter: 2018Q1

REPORT INFORMATION
  Report Type: Spontaneous
  Country: JP (occurrence: JP)
  Receive Date: 20180209
  Receipt Date: 20180221
  Transmission Date: 20180509
  Serious: Yes (Other)
  Sender: FDA-Public Use
  Company Number: JP-GLAXOSMITHKLINE-JP2018JPN019055

PATIENT
  Age: 32 Year
  Sex: Male
  Weight: 72 kg

DRUGS (4)
  1. CEFDINIR. [Concomitant]
     Active Substance: CEFDINIR
     Dosage: 300 MG, 1D
  2. VALTREX [Suspect]
     Active Substance: VALACYCLOVIR HYDROCHLORIDE
     Indication: KAPOSI^S VARICELLIFORM ERUPTION
     Dosage: 750 MG, 1D
     Route: 048
     Dates: start: 20160523, end: 20160525
  3. PREDNISOLONE. [Concomitant]
     Active Substance: PREDNISOLONE
     Indication: DERMATITIS ATOPIC
     Dosage: 10 MG, 1D
  4. PREDNISOLONE. [Concomitant]
     Active Substance: PREDNISOLONE
     Dosage: 5 MG, 1D

REACTIONS (14)
  - Mental impairment [Recovered/Resolved]
  - Delusion [Recovered/Resolved]
  - Altered state of consciousness [Recovered/Resolved]
  - Abnormal behaviour [Recovered/Resolved]
  - Restlessness [Recovered/Resolved]
  - Product use in unapproved indication [Unknown]
  - Encephalopathy [Recovering/Resolving]
  - Central nervous system lesion [Recovered/Resolved]
  - Dry mouth [Unknown]
  - Toxic encephalopathy [Recovering/Resolving]
  - Hyponatraemia [Recovering/Resolving]
  - Encephalitis [Recovering/Resolving]
  - Hallucination [Recovered/Resolved]
  - Renal disorder [Recovering/Resolving]

NARRATIVE: CASE EVENT DATE: 2016
